FAERS Safety Report 5205757-8 (Version None)
Quarter: 2007Q1

REPORT INFORMATION
  Report Type: 
  Country: None (occurrence: None)
  Receive Date: 20070105
  Receipt Date: 20070105
  Transmission Date: 20070707
  Serious: Yes (Hospitalization)
  Sender: FDA-Public Use
  Company Number: None

PATIENT
  Age: 80 Year
  Sex: Male
  Weight: 91.6 kg

DRUGS (1)
  1. ZOSYN [Suspect]
     Indication: OSTEOMYELITIS
     Dosage: 3.375GM Q6H

REACTIONS (2)
  - RED BLOOD CELL COUNT DECREASED [None]
  - THROMBOCYTOPENIA [None]
